FAERS Safety Report 6107437-3 (Version None)
Quarter: 2009Q1

REPORT INFORMATION
  Report Type: 
  Country: None (occurrence: None)
  Receive Date: 20090309
  Receipt Date: 20090224
  Transmission Date: 20090719
  Serious: Yes (Hospitalization)
  Sender: FDA-Public Use
  Company Number: US-PFIZER INC-2009167590

PATIENT
  Sex: Male
  Weight: 100 kg

DRUGS (17)
  1. BLINDED *PLACEBO [Suspect]
     Indication: HIV INFECTION
     Dosage: 150 MG, 2X/DAY
     Dates: start: 20060322, end: 20061013
  2. BLINDED MARAVIROC [Suspect]
     Indication: HIV INFECTION
     Dosage: 150 MG, 2X/DAY
     Dates: start: 20060322, end: 20061013
  3. LEVAQUIN [Concomitant]
     Dosage: UNK
     Route: 048
     Dates: start: 20081114, end: 20081128
  4. DILANTIN [Concomitant]
     Dosage: UNK
     Route: 042
     Dates: start: 20081114
  5. PERCOCET [Concomitant]
     Dosage: UNK
     Route: 048
     Dates: start: 20081114
  6. LEVOFLOXACIN [Concomitant]
     Dosage: UNK
     Route: 048
     Dates: start: 20081203
  7. CEFTRIAXONE [Concomitant]
     Dosage: UNK
     Route: 048
     Dates: start: 20081203
  8. DOXYCYCLINE [Concomitant]
     Dosage: UNK
     Route: 048
     Dates: start: 20081203
  9. AZITHROMYCIN [Concomitant]
     Dosage: UNK
     Route: 048
     Dates: start: 20081203
  10. PREZISTA [Concomitant]
     Route: 048
  11. NEOVIR [Concomitant]
     Route: 048
  12. RALTEGRAVIR [Concomitant]
     Route: 048
  13. TRUVADA [Concomitant]
     Route: 048
  14. ASCORBIC ACID [Concomitant]
     Route: 048
  15. ADVAIR DISKUS 100/50 [Concomitant]
     Route: 048
  16. IMITREX [Concomitant]
     Route: 048
  17. SUDAFED 12 HOUR [Concomitant]
     Route: 048

REACTIONS (3)
  - PNEUMONIA PNEUMOCOCCAL [None]
  - PNEUMONIA STREPTOCOCCAL [None]
  - SEPSIS [None]
